FAERS Safety Report 6883275-9 (Version None)
Quarter: 2010Q3

REPORT INFORMATION
  Report Type: 
  Country: None (occurrence: None)
  Receive Date: 20100708
  Receipt Date: 20100420
  Transmission Date: 20110219
  Serious: Yes (Hospitalization, Other)
  Sender: FDA-Public Use
  Company Number: 2009283264

PATIENT
  Age: 49 Year
  Sex: Male
  Weight: 106 kg

DRUGS (6)
  1. CHANTIX [Suspect]
     Indication: SMOKING CESSATION THERAPY
     Dosage: ORAL
     Route: 048
     Dates: start: 20090313, end: 20090514
  2. LORTAB [Concomitant]
  3. CADUET [Concomitant]
  4. MAXZIDE [Concomitant]
  5. ACYCLOVIR [Concomitant]
  6. PROTONIX [Concomitant]

REACTIONS (1)
  - DIABETES MELLITUS [None]
